FAERS Safety Report 15538924 (Version 1)
Quarter: 2018Q4

REPORT INFORMATION
  Report Type: Spontaneous
  Country: GB (occurrence: GB)
  Receive Date: 20181022
  Receipt Date: 20181022
  Transmission Date: 20190205
  Serious: Yes (Hospitalization, Other)
  Sender: FDA-Public Use
  Company Number: GB-PFIZER INC-2018423200

PATIENT
  Age: 77 Year

DRUGS (11)
  1. IMATINIB. [Suspect]
     Active Substance: IMATINIB MESYLATE
     Dosage: 200 MG, DAILY
     Route: 065
     Dates: start: 20170831
  2. IMATINIB. [Suspect]
     Active Substance: IMATINIB MESYLATE
     Dosage: 200 MG, DAILY
     Route: 065
     Dates: start: 20171211, end: 20171228
  3. IMATINIB. [Suspect]
     Active Substance: IMATINIB MESYLATE
     Dosage: 200 MG, DAILY
     Route: 065
     Dates: start: 20180125, end: 20180220
  4. BOSUTINIB [Suspect]
     Active Substance: BOSUTINIB
     Dosage: 100 MG, DAILY
     Route: 065
     Dates: start: 20170831
  5. BOSUTINIB [Suspect]
     Active Substance: BOSUTINIB
     Dosage: 100 MG, DAILY
     Route: 065
     Dates: start: 20180712, end: 20180724
  6. IMATINIB. [Suspect]
     Active Substance: IMATINIB MESYLATE
     Dosage: (200 MG /300MG)
     Route: 065
     Dates: start: 20171204
  7. IMATINIB. [Suspect]
     Active Substance: IMATINIB MESYLATE
     Indication: CHRONIC MYELOID LEUKAEMIA
     Dosage: 300 MG, DAILY
     Route: 065
     Dates: start: 20170223
  8. IMATINIB. [Suspect]
     Active Substance: IMATINIB MESYLATE
     Dosage: 100 MG, DAILY
     Route: 065
     Dates: start: 20170410
  9. IMATINIB. [Suspect]
     Active Substance: IMATINIB MESYLATE
     Dosage: 400 MG, DAILY
     Route: 065
     Dates: start: 20170302, end: 20170316
  10. IMATINIB. [Suspect]
     Active Substance: IMATINIB MESYLATE
     Dosage: 200 MG, DAILY
     Route: 065
     Dates: start: 20170511, end: 201708
  11. IMATINIB. [Suspect]
     Active Substance: IMATINIB MESYLATE
     Dosage: 200 MG, DAILY
     Route: 065
     Dates: start: 20171116

REACTIONS (9)
  - Myocardial ischaemia [Unknown]
  - Neoplasm progression [Unknown]
  - Fluid retention [Unknown]
  - Leukopenia [Unknown]
  - Pulmonary oedema [Unknown]
  - Fluid overload [Unknown]
  - Laboratory test abnormal [Unknown]
  - Neutropenia [Unknown]
  - Anaemia [Unknown]
